FAERS Safety Report 5869224-0 (Version None)
Quarter: 2008Q3

REPORT INFORMATION
  Report Type: 
  Country: None (occurrence: None)
  Receive Date: 20080818
  Receipt Date: 20080501
  Transmission Date: 20090109
  Serious: No
  Sender: FDA-Public Use
  Company Number: 20085055

PATIENT
  Sex: Female

DRUGS (1)
  1. LIORESAL [Suspect]
     Indication: MUSCLE SPASTICITY
     Dosage: SEE B5 MCG, DAILY, INTRATHECAL
     Route: 037

REACTIONS (16)
  - ASTHENIA [None]
  - COORDINATION ABNORMAL [None]
  - DIPLOPIA [None]
  - GAIT DISTURBANCE [None]
  - HYPERTONIA [None]
  - HYPOTONIA [None]
  - INSOMNIA [None]
  - NAUSEA [None]
  - PAIN [None]
  - PARAESTHESIA [None]
  - POLLAKIURIA [None]
  - PRURITUS [None]
  - TREMOR [None]
  - URINARY INCONTINENCE [None]
  - VOMITING [None]
  - WITHDRAWAL SYNDROME [None]
